FAERS Safety Report 7251549-8 (Version None)
Quarter: 2011Q1

REPORT INFORMATION
  Report Type: 
  Country: None (occurrence: None)
  Receive Date: 20110128
  Receipt Date: 20110120
  Transmission Date: 20110831
  Serious: Yes (Other)
  Sender: FDA-Public Use
  Company Number: CHPA2011CH01298

PATIENT
  Age: 57 Year
  Sex: Female

DRUGS (1)
  1. NICOTINELL GUM [Suspect]
     Dosage: 2 MG, UNK
     Route: 065

REACTIONS (1)
  - DRUG DEPENDENCE [None]
